FAERS Safety Report 4646949-6 (Version None)
Quarter: 2005Q2

REPORT INFORMATION
  Report Type: 
  Country: None (occurrence: None)
  Receive Date: 20050331
  Receipt Date: 20050211
  Transmission Date: 20051028
  Serious: No
  Sender: FDA-Public Use
  Company Number: 05P-163-0290341-00

PATIENT
  Age: 35 Year
  Sex: Female
  Weight: 52.1637 kg

DRUGS (8)
  1. HUMIRA [Suspect]
     Indication: RHEUMATOID ARTHRITIS
     Dosage: 40 MG, 1 IN 2 WK, SUBCUTANEOUS;  40 MG, 1 IN 1 WK, SUBCUTANEOUS
     Route: 058
     Dates: start: 20010101, end: 20050211
  2. HUMIRA [Suspect]
     Indication: RHEUMATOID ARTHRITIS
     Dosage: 40 MG, 1 IN 2 WK, SUBCUTANEOUS;  40 MG, 1 IN 1 WK, SUBCUTANEOUS
     Route: 058
     Dates: start: 20050211
  3. PREDNISONE [Concomitant]
  4. VICODIN [Concomitant]
  5. ASASANTIN [Concomitant]
  6. FOLGARD [Concomitant]
  7. VENLAFAXINE HCL [Concomitant]
  8. AMLODIPINE BESYLATE [Concomitant]

REACTIONS (2)
  - INJECTION SITE INDURATION [None]
  - RHEUMATOID ARTHRITIS [None]
